FAERS Safety Report 11144977 (Version 1)
Quarter: 2015Q2

REPORT INFORMATION
  Report Type: Report from Study
  Country: DE (occurrence: DE)
  Receive Date: 20150528
  Receipt Date: 20150528
  Transmission Date: 20150821
  Serious: Yes (Other)
  Sender: FDA-Public Use
  Company Number: DE-ABBVIE-15K-062-1395053-00

PATIENT
  Age: 25 Year
  Sex: Female

DRUGS (1)
  1. HUMIRA [Suspect]
     Active Substance: ADALIMUMAB
     Indication: CROHN^S DISEASE
     Route: 058
     Dates: start: 20141202, end: 201501

REACTIONS (3)
  - Cystitis [Recovering/Resolving]
  - Renal disorder [Recovering/Resolving]
  - Bladder pain [Recovering/Resolving]

NARRATIVE: CASE EVENT DATE: 201412
